FAERS Safety Report 25192006 (Version 2)
Quarter: 2025Q3

REPORT INFORMATION
  Report Type: Spontaneous
  Country: EU (occurrence: EU)
  Receive Date: 20250414
  Receipt Date: 20250728
  Transmission Date: 20251020
  Serious: No
  Sender: AMGEN
  Company Number: EU-AMGEN-SVKSP2025070611

PATIENT

DRUGS (1)
  1. IVABRADINE [Suspect]
     Active Substance: IVABRADINE
     Indication: Product used for unknown indication
     Route: 065

REACTIONS (1)
  - No adverse event [Recovered/Resolved]
